FAERS Safety Report 4634909-0 (Version None)
Quarter: 2005Q2

REPORT INFORMATION
  Report Type: 
  Country: None (occurrence: None)
  Receive Date: 20050412
  Receipt Date: 20050329
  Transmission Date: 20051028
  Serious: Yes (Other)
  Sender: FDA-Public Use
  Company Number: 2005044270

PATIENT
  Sex: Female

DRUGS (1)
  1. MINOXIDIL [Suspect]
     Dosage: UNSPECIFIED AMT, THREE TIMES
     Dates: start: 20041101, end: 20050101

REACTIONS (4)
  - CEREBELLAR INFARCTION [None]
  - LACUNAR INFARCTION [None]
  - MOVEMENT DISORDER [None]
  - RESTLESSNESS [None]
